FAERS Safety Report 5627672-8 (Version None)
Quarter: 2008Q1

REPORT INFORMATION
  Report Type: 
  Country: None (occurrence: None)
  Receive Date: 20080215
  Receipt Date: 20080204
  Transmission Date: 20080703
  Serious: Yes (Hospitalization, Other)
  Sender: FDA-Public Use
  Company Number: US-AMGEN-STX249348

PATIENT
  Sex: Female
  Weight: 76.3 kg

DRUGS (16)
  1. ENBREL [Suspect]
     Indication: PSORIASIS
     Route: 058
     Dates: start: 20071016
  2. ENBREL [Suspect]
     Indication: PSORIATIC ARTHROPATHY
  3. ENBREL [Suspect]
     Indication: RHEUMATOID ARTHRITIS
  4. METHOTREXATE [Concomitant]
     Route: 065
  5. FOLIC ACID [Concomitant]
  6. PLAVIX [Concomitant]
  7. LIPITOR [Concomitant]
  8. CELEBREX [Concomitant]
  9. ULTRAM [Concomitant]
  10. HYDROCODONE BITARTRATE [Concomitant]
  11. ANALGESICS [Concomitant]
  12. ASPIRIN [Concomitant]
     Dates: start: 20071025
  13. LOPRESSOR [Concomitant]
     Dates: start: 20071025
  14. ZOLOFT [Concomitant]
     Dates: start: 20071022
  15. ATIVAN [Concomitant]
     Dates: start: 20071022
  16. ZOCOR [Concomitant]
     Dates: start: 20071022

REACTIONS (6)
  - ACUTE MYOCARDIAL INFARCTION [None]
  - CARDIO-RESPIRATORY ARREST [None]
  - CORONARY ARTERY DISEASE [None]
  - DEPRESSED MOOD [None]
  - HYPERLIPIDAEMIA [None]
  - VENTRICULAR TACHYCARDIA [None]
